FAERS Safety Report 8820383 (Version 1)
Quarter: 2012Q4

REPORT INFORMATION
  Report Type: 
  Country: US (occurrence: US)
  Receive Date: 20121002
  Receipt Date: 20121002
  Transmission Date: 20130627
  Serious: Yes (Hospitalization)
  Sender: FDA-Public Use
  Company Number: US-BAYER-2012-101590

PATIENT
  Age: 44 Year
  Sex: Female

DRUGS (10)
  1. YAZ [Suspect]
     Indication: MENORRHAGIA
  2. FLUOXETINE [Concomitant]
  3. BUPROPION [Concomitant]
  4. ASPIRIN [Concomitant]
  5. TYLENOL [Concomitant]
  6. OXYCODONE [Concomitant]
  7. LORAZEPAM [Concomitant]
  8. ZANTAC [Concomitant]
  9. COLACE [Concomitant]
  10. SENNA [Concomitant]

REACTIONS (3)
  - Cerebrovascular accident [None]
  - Pulmonary embolism [None]
  - Deep vein thrombosis [None]
